FAERS Safety Report 14529355 (Version 2)
Quarter: 2018Q1

REPORT INFORMATION
  Report Type: Report from Study
  Country: IT (occurrence: IT)
  Receive Date: 20180214
  Receipt Date: 20180219
  Transmission Date: 20180509
  Serious: Yes (Hospitalization)
  Sender: FDA-Public Use
  Company Number: IT-009507513-1802ITA005258

PATIENT
  Age: 19 Year
  Sex: Female

DRUGS (5)
  1. METFORMIN [Suspect]
     Active Substance: METFORMIN HYDROCHLORIDE
     Indication: INTENTIONAL SELF-INJURY
     Dosage: IN TOTAL
     Route: 048
  2. MONTELUKAST SODIUM. [Suspect]
     Active Substance: MONTELUKAST SODIUM
     Indication: INTENTIONAL SELF-INJURY
     Dosage: 4 DF, QW
     Route: 048
  3. EPERISONE [Suspect]
     Active Substance: EPERISONE
     Indication: INTENTIONAL SELF-INJURY
     Dosage: IN TOTAL
  4. TACHIPIRINA [Suspect]
     Active Substance: ACETAMINOPHEN
     Indication: INTENTIONAL SELF-INJURY
     Dosage: IN TOTAL
     Route: 048
  5. KETOTIFEN FUMARATE. [Suspect]
     Active Substance: KETOTIFEN FUMARATE
     Indication: INTENTIONAL SELF-INJURY
     Dosage: IN TOTAL
     Route: 048

REACTIONS (4)
  - Drug abuse [Unknown]
  - Vomiting [Unknown]
  - Overdose [Unknown]
  - Intentional self-injury [Unknown]

NARRATIVE: CASE EVENT DATE: 20170118
